FAERS Safety Report 5662198-7 (Version None)
Quarter: 2008Q1

REPORT INFORMATION
  Report Type: 
  Country: None (occurrence: None)
  Receive Date: 20080201
  Receipt Date: 20071213
  Transmission Date: 20080703
  Serious: Yes (Other)
  Sender: FDA-Public Use
  Company Number: 165288USA

PATIENT
  Age: 66 Year
  Sex: Female

DRUGS (2)
  1. IFOSFAMIDE [Suspect]
     Indication: UTERINE CANCER
     Dosage: 2GM/500ML NORMAL SALINE (2 GRAM), INTRAVENOUS DRIP
     Route: 041
     Dates: start: 20071211, end: 20071211
  2. CISPLATIN [Suspect]
     Indication: UTERINE CANCER
     Dosage: INTRAVENOUS DRIP
     Route: 041
     Dates: start: 20071211, end: 20071211

REACTIONS (1)
  - TREMOR [None]
